FAERS Safety Report 23285932 (Version 1)
Quarter: 2023Q4

REPORT INFORMATION
  Report Type: Spontaneous
  Country: US (occurrence: US)
  Receive Date: 20231212
  Receipt Date: 20231212
  Transmission Date: 20240110
  Serious: No
  Sender: FDA-Public Use
  Company Number: US-SA-SAC20231206000405

PATIENT
  Age: 70 Year
  Sex: Female

DRUGS (6)
  1. DUPIXENT [Suspect]
     Active Substance: DUPILUMAB
     Indication: Dermatitis atopic
     Dosage: 300 MG, QOW
     Route: 058
     Dates: start: 20230711
  2. EMGALITY [Suspect]
     Active Substance: GALCANEZUMAB-GNLM
  3. CARVEDILOL [Concomitant]
     Active Substance: CARVEDILOL
  4. DEPAKOTE [Concomitant]
     Active Substance: DIVALPROEX SODIUM
  5. GABAPENTIN [Concomitant]
     Active Substance: GABAPENTIN
  6. PAROXETINE HYDROCHLORIDE [Concomitant]
     Active Substance: PAROXETINE HYDROCHLORIDE\PAROXETINE HYDROCHLORIDE ANHYDROUS

REACTIONS (3)
  - Infection [Unknown]
  - Dizziness [Unknown]
  - Back pain [Unknown]

NARRATIVE: CASE EVENT DATE: 20230101
